FAERS Safety Report 6038487-3 (Version None)
Quarter: 2009Q1

REPORT INFORMATION
  Report Type: 
  Country: None (occurrence: None)
  Receive Date: 20090115
  Receipt Date: 20080804
  Transmission Date: 20090719
  Serious: No
  Sender: FDA-Public Use
  Company Number: US-KINGPHARMUSA00001-K200800924

PATIENT
  Age: 7 Year
  Sex: Male

DRUGS (6)
  1. EPIPEN JR. [Suspect]
     Indication: LATEX ALLERGY
     Dosage: .15 MG, SINGLE
     Dates: start: 20080803, end: 20080803
  2. TRILEPTAL [Concomitant]
     Indication: CONVULSION
     Dosage: UNK, BID
  3. SINGULAIR [Concomitant]
     Indication: ASTHMA
  4. ALBUTEROL [Concomitant]
     Indication: ASTHMA
  5. FLOVENT [Concomitant]
     Indication: ASTHMA
  6. PREVACID [Concomitant]
     Indication: GASTROOESOPHAGEAL REFLUX DISEASE

REACTIONS (3)
  - ACCIDENTAL EXPOSURE [None]
  - HYPOAESTHESIA [None]
  - OEDEMA PERIPHERAL [None]
